FAERS Safety Report 9326507 (Version 1)
Quarter: 2013Q2

REPORT INFORMATION
  Report Type: Spontaneous
  Country: US (occurrence: None)
  Receive Date: 20130603
  Receipt Date: 20130603
  Transmission Date: 20140414
  Serious: Yes (Other)
  Sender: FDA-Public Use
  Company Number: None

PATIENT
  Age: 90 Year
  Sex: Female
  Weight: 72.58 kg

DRUGS (1)
  1. SERTRALINE [Suspect]

REACTIONS (3)
  - Hyperhidrosis [None]
  - Palpitations [None]
  - Diarrhoea [None]
